FAERS Safety Report 4289732-6 (Version None)
Quarter: 2004Q1

REPORT INFORMATION
  Report Type: 
  Country: None (occurrence: None)
  Receive Date: 20040206
  Receipt Date: 20040126
  Transmission Date: 20041129
  Serious: No
  Sender: FDA-Public Use
  Company Number: 04P-167-0248938-00

PATIENT
  Age: 75 Year
  Sex: Male
  Weight: 95 kg

DRUGS (1)
  1. BIAXIN [Suspect]
     Indication: BRONCHITIS
     Dosage: 1 DOSAGE FORMS, 2 IN 1 D, PER ORAL
     Route: 048
     Dates: start: 20010515, end: 20010522

REACTIONS (1)
  - RHEUMATOID ARTHRITIS [None]
